FAERS Safety Report 21965636 (Version 1)
Quarter: 2023Q1

REPORT INFORMATION
  Report Type: Spontaneous
  Country: CN (occurrence: CN)
  Receive Date: 20230208
  Receipt Date: 20230208
  Transmission Date: 20230417
  Serious: Yes (Hospitalization)
  Sender: FDA-Public Use
  Company Number: CN-JNJFOC-20230212464

PATIENT
  Age: 65 Year
  Sex: Male

DRUGS (1)
  1. CETIRIZINE HYDROCHLORIDE [Suspect]
     Active Substance: CETIRIZINE HYDROCHLORIDE
     Indication: Rash pruritic
     Dosage: UNK
     Route: 048

REACTIONS (5)
  - Rash [Unknown]
  - Skin discolouration [Unknown]
  - Pain [Unknown]
  - Depression [Unknown]
  - Drug ineffective [Unknown]

NARRATIVE: CASE EVENT DATE: 20201023
